FAERS Safety Report 5739802-8 (Version None)
Quarter: 2008Q2

REPORT INFORMATION
  Report Type: 
  Country: None (occurrence: None)
  Receive Date: 20080513
  Receipt Date: 20080513
  Transmission Date: 20081010
  Serious: Yes (Hospitalization)
  Sender: FDA-Public Use
  Company Number: None

PATIENT
  Age: 72 Year
  Sex: Male

DRUGS (2)
  1. NAPROXEN [Suspect]
     Indication: BACK INJURY
     Dosage: 100MG BID PO
     Route: 048
  2. IBUPROFEN [Suspect]
     Indication: BACK INJURY
     Dosage: PRN PO
     Route: 048

REACTIONS (7)
  - DIZZINESS [None]
  - DUODENAL ULCER [None]
  - GASTROINTESTINAL EROSION [None]
  - HAEMOGLOBIN DECREASED [None]
  - HYPOTENSION [None]
  - PRESYNCOPE [None]
  - RECTAL HAEMORRHAGE [None]
